FAERS Safety Report 14147580 (Version 2)
Quarter: 2017Q4

REPORT INFORMATION
  Report Type: Report from Study
  Country: US (occurrence: US)
  Receive Date: 20171031
  Receipt Date: 20171109
  Transmission Date: 20180321
  Serious: Yes (Hospitalization)
  Sender: FDA-Public Use
  Company Number: US-GILEAD-2017-0301908

PATIENT
  Age: 58 Year
  Sex: Male

DRUGS (1)
  1. RANOLAZINE. [Suspect]
     Active Substance: RANOLAZINE
     Indication: ANGINA PECTORIS
     Dosage: 500 MG, UNK
     Route: 048
     Dates: start: 2011

REACTIONS (4)
  - Tooth disorder [Unknown]
  - Intentional product use issue [Not Recovered/Not Resolved]
  - Hernia [Unknown]
  - Lipoma [Unknown]

NARRATIVE: CASE EVENT DATE: 2017
